FAERS Safety Report 16223243 (Version 1)
Quarter: 2019Q2

REPORT INFORMATION
  Report Type: Spontaneous
  Country: US (occurrence: US)
  Receive Date: 20190420
  Receipt Date: 20190420
  Transmission Date: 20190711
  Serious: No
  Sender: FDA-Public Use
  Company Number: None

PATIENT
  Age: 65 Year
  Sex: Male
  Weight: 81 kg

DRUGS (5)
  1. LEVOCETERIZINE [Concomitant]
  2. KOMBIGLYZE XR [Suspect]
     Active Substance: METFORMIN HYDROCHLORIDE\SAXAGLIPTIN HYDROCHLORIDE
     Indication: BLOOD GLUCOSE INCREASED
     Dosage: ?          QUANTITY:1 TABLET(S);?
     Route: 048
  3. ATORVASTATIN [Concomitant]
     Active Substance: ATORVASTATIN
  4. LOSARTAN. [Concomitant]
     Active Substance: LOSARTAN
  5. ASPIRIN. [Concomitant]
     Active Substance: ASPIRIN

REACTIONS (1)
  - Tinnitus [None]

NARRATIVE: CASE EVENT DATE: 20190401
